FAERS Safety Report 11102380 (Version 2)
Quarter: 2015Q2

REPORT INFORMATION
  Report Type: Spontaneous
  Country: US (occurrence: US)
  Receive Date: 20150511
  Receipt Date: 20150520
  Transmission Date: 20150821
  Serious: Yes (Hospitalization)
  Sender: FDA-Public Use
  Company Number: US-BAYER-2015-198865

PATIENT
  Age: 30 Year
  Sex: Female
  Weight: 77.98 kg

DRUGS (7)
  1. VIBRA [Concomitant]
  2. SPRINTEC [Concomitant]
     Active Substance: ETHINYL ESTRADIOL\NORGESTIMATE
  3. MIRENA [Suspect]
     Active Substance: LEVONORGESTREL
     Indication: CONTRACEPTION
     Dosage: 20 MCG/24HR, CONT
     Route: 015
     Dates: start: 20081002, end: 20130424
  4. FLAGYL [Concomitant]
     Active Substance: METRONIDAZOLE\METRONIDAZOLE HYDROCHLORIDE
  5. PERCOCET [OXYCODONE HYDROCHLORIDE,OXYCODONE TEREPHTHALATE,PARACETA [Concomitant]
  6. METRONIDAZOLE. [Suspect]
     Active Substance: METRONIDAZOLE
  7. ROCEPHIN [Concomitant]
     Active Substance: CEFTRIAXONE SODIUM

REACTIONS (9)
  - Pain [None]
  - Abdominal pain lower [None]
  - Injury [None]
  - Device issue [None]
  - Emotional distress [None]
  - Depression [None]
  - Uterine perforation [None]
  - Pelvic inflammatory disease [None]
  - Hysterectomy [None]

NARRATIVE: CASE EVENT DATE: 2013
